FAERS Safety Report 23918630 (Version 1)
Quarter: 2024Q2

REPORT INFORMATION
  Report Type: Spontaneous
  Country: JP (occurrence: JP)
  Receive Date: 20240530
  Receipt Date: 20240530
  Transmission Date: 20240715
  Serious: Yes (Life-Threatening, Hospitalization, Other)
  Sender: FDA-Public Use
  Company Number: JP-862174955-ML2024-03165

PATIENT
  Age: 6 Decade
  Sex: Female

DRUGS (14)
  1. OLMESARTAN MEDOXOMIL [Suspect]
     Active Substance: OLMESARTAN MEDOXOMIL
     Indication: Product used for unknown indication
     Dosage: PRESCRIBED DAILY DOSE
  2. OLMESARTAN MEDOXOMIL [Suspect]
     Active Substance: OLMESARTAN MEDOXOMIL
     Dosage: INGESTED DOSE
  3. TELMISARTAN [Suspect]
     Active Substance: TELMISARTAN
     Indication: Product used for unknown indication
     Dosage: PRESCRIBED DAILY DOSE
  4. TELMISARTAN [Suspect]
     Active Substance: TELMISARTAN
     Dosage: INGESTED DOSE
  5. VILDAGLIPTIN [Suspect]
     Active Substance: VILDAGLIPTIN
     Indication: Product used for unknown indication
     Dosage: PRESCRIBED DAILY DOSE
  6. VILDAGLIPTIN [Suspect]
     Active Substance: VILDAGLIPTIN
     Dosage: INGESTED DOSE
  7. AMLODIPINE [Suspect]
     Active Substance: AMLODIPINE BESYLATE
     Indication: Product used for unknown indication
     Dosage: PRESCRIBED DAILY DOSE
  8. AMLODIPINE [Suspect]
     Active Substance: AMLODIPINE BESYLATE
     Dosage: INGESTED DOSE
  9. AZELNIDIPINE [Suspect]
     Active Substance: AZELNIDIPINE
     Indication: Product used for unknown indication
     Dosage: PRESCRIBED DAILY DOSE
  10. AZELNIDIPINE [Suspect]
     Active Substance: AZELNIDIPINE
     Dosage: INGESTED DOSE
  11. NIFEDIPINE [Suspect]
     Active Substance: NIFEDIPINE
     Indication: Product used for unknown indication
     Dosage: PRESCRIBED DAILY DOSE
  12. NIFEDIPINE [Suspect]
     Active Substance: NIFEDIPINE
     Dosage: INGESTED DOSE
  13. ESAXERENONE [Suspect]
     Active Substance: ESAXERENONE
     Indication: Product used for unknown indication
  14. ESAXERENONE [Suspect]
     Active Substance: ESAXERENONE

REACTIONS (3)
  - Compartment syndrome [Recovered/Resolved]
  - Angioedema [Recovered/Resolved]
  - Intentional overdose [Unknown]
